FAERS Safety Report 10674737 (Version 1)
Quarter: 2014Q4

REPORT INFORMATION
  Report Type: Spontaneous
  Country: PL (occurrence: PL)
  Receive Date: 20141224
  Receipt Date: 20141224
  Transmission Date: 20150529
  Serious: Yes (Life-Threatening, Hospitalization, Other)
  Sender: FDA-Public Use
  Company Number: PL-JNJFOC-20141207763

PATIENT
  Age: 16 Year
  Sex: Male
  Weight: 65.5 kg

DRUGS (8)
  1. LEVOMEPROMAZINE [Suspect]
     Active Substance: LEVOMEPROMAZINE
     Indication: PSYCHOTIC DISORDER
     Route: 065
  2. OLANZAPINE. [Suspect]
     Active Substance: OLANZAPINE
     Indication: PSYCHOTIC DISORDER
     Route: 065
     Dates: start: 200909
  3. LORAZEPAM. [Suspect]
     Active Substance: LORAZEPAM
     Indication: PSYCHOTIC DISORDER
     Dosage: 1 TO 3 MG PER DAY, AS NECESSARY
     Route: 065
  4. LORAZEPAM. [Suspect]
     Active Substance: LORAZEPAM
     Indication: AGITATION
     Dosage: 1 TO 3 MG PER DAY, AS NECESSARY
     Route: 065
  5. LORAZEPAM. [Suspect]
     Active Substance: LORAZEPAM
     Indication: PSYCHOTIC DISORDER
     Route: 065
     Dates: start: 200909
  6. LORAZEPAM. [Suspect]
     Active Substance: LORAZEPAM
     Indication: AGITATION
     Route: 065
     Dates: start: 200909
  7. LEVOMEPROMAZINE [Suspect]
     Active Substance: LEVOMEPROMAZINE
     Indication: PSYCHOTIC DISORDER
     Route: 065
     Dates: start: 200909
  8. HALOPERIDOL. [Suspect]
     Active Substance: HALOPERIDOL
     Indication: AGGRESSION
     Route: 030
     Dates: start: 2009

REACTIONS (7)
  - Neuroleptic malignant syndrome [Unknown]
  - Coma [Recovered/Resolved]
  - Heart injury [Unknown]
  - Delirium [Unknown]
  - Blood urea increased [Unknown]
  - Ventricular hypokinesia [Unknown]
  - Generalised tonic-clonic seizure [Recovered/Resolved]
